FAERS Safety Report 12944306 (Version 1)
Quarter: 2016Q4

REPORT INFORMATION
  Report Type: Spontaneous
  Country: PK (occurrence: PK)
  Receive Date: 20161115
  Receipt Date: 20161115
  Transmission Date: 20170207
  Serious: Yes (Death)
  Sender: FDA-Public Use
  Company Number: PK-BAYER-2016-217687

PATIENT
  Age: 37 Year
  Sex: Female

DRUGS (5)
  1. TRAMOL [Concomitant]
  2. FLAGYL [Concomitant]
     Active Substance: METRONIDAZOLE\METRONIDAZOLE HYDROCHLORIDE
     Route: 042
  3. ULTRAVIST [Suspect]
     Active Substance: IOPROMIDE
     Indication: COMPUTERISED TOMOGRAM
     Dosage: UNK, ONCE
     Route: 042
     Dates: start: 20160917, end: 20160917
  4. ULTRAVIST [Suspect]
     Active Substance: IOPROMIDE
     Indication: ACUTE ABDOMEN
  5. ROCEPHIN [Concomitant]
     Active Substance: CEFTRIAXONE SODIUM
     Route: 042

REACTIONS (5)
  - Hypotension [None]
  - Death [Fatal]
  - Irritability [None]
  - Oxygen saturation decreased [None]
  - Dyspnoea [None]

NARRATIVE: CASE EVENT DATE: 20160917
